FAERS Safety Report 9025324 (Version 3)
Quarter: 2014Q2

REPORT INFORMATION
  Report Type: Spontaneous
  Country: US (occurrence: US)
  Receive Date: 20130122
  Receipt Date: 20140505
  Transmission Date: 20141212
  Serious: Yes (Hospitalization, Other)
  Sender: FDA-Public Use
  Company Number: US-009507513-1301USA009729

PATIENT
  Sex: Female
  Weight: 122.45 kg

DRUGS (1)
  1. FOSAMAX [Suspect]
     Indication: OSTEOPOROSIS
     Dosage: 70 MG, UNK
     Route: 048
     Dates: start: 20060516

REACTIONS (38)
  - Femur fracture [Unknown]
  - Intramedullary rod insertion [Unknown]
  - Tibia fracture [Unknown]
  - Open reduction of fracture [Unknown]
  - Wound dehiscence [Recovering/Resolving]
  - Wound infection [Recovered/Resolved]
  - Adverse event [Unknown]
  - Cellulitis [Unknown]
  - Abscess limb [Unknown]
  - Low turnover osteopathy [Unknown]
  - Ankle fracture [Unknown]
  - Road traffic accident [Unknown]
  - Fracture displacement [Unknown]
  - Injury [Unknown]
  - Ankle fracture [Unknown]
  - Closed fracture manipulation [Unknown]
  - External fixation of fracture [Recovered/Resolved]
  - Medical device removal [Unknown]
  - Radius fracture [Unknown]
  - Osteochondrosis [Unknown]
  - Road traffic accident [Unknown]
  - Ligament sprain [Unknown]
  - Bone disorder [Unknown]
  - Tenosynovitis [Unknown]
  - Treatment noncompliance [Unknown]
  - Foot deformity [Unknown]
  - Impaired healing [Recovering/Resolving]
  - Impacted fracture [Unknown]
  - Device failure [Unknown]
  - Osteopenia [Unknown]
  - Arthritis [Unknown]
  - Synovitis [Unknown]
  - Fall [Unknown]
  - Patella fracture [Unknown]
  - Joint effusion [Recovered/Resolved]
  - Arthropathy [Unknown]
  - Exostosis [Unknown]
  - Back pain [Unknown]
